FAERS Safety Report 17910079 (Version 1)
Quarter: 2020Q2

REPORT INFORMATION
  Report Type: Spontaneous
  Country: DE (occurrence: DE)
  Receive Date: 20200618
  Receipt Date: 20200618
  Transmission Date: 20200714
  Serious: Yes (Hospitalization)
  Sender: FDA-Public Use
  Company Number: DE-HORIZON-PRE-0186-2020

PATIENT
  Age: 91 Year
  Sex: Female
  Weight: 60 kg

DRUGS (7)
  1. EDOXABAN [Concomitant]
     Active Substance: EDOXABAN TOSYLATE
     Dosage: 30 MG, 1-0-0-0
  2. METAMIZOL [Concomitant]
     Active Substance: METAMIZOLE SODIUM
     Dosage: WHEN NEEDED, DROPS
  3. VITAMIN D [Concomitant]
     Active Substance: VITAMIN D NOS
     Dosage: 1000 IE, 1-0-0-0
  4. ATENOLOL. [Concomitant]
     Active Substance: ATENOLOL
     Dosage: 25 MG, 0.5-0-0.5-0
  5. TORASEMID [Concomitant]
     Active Substance: TORSEMIDE
     Dosage: 20 MG, 1-0-0-0
  6. PREDNISONE. [Suspect]
     Active Substance: PREDNISONE
     Indication: PRODUCT USED FOR UNKNOWN INDICATION
     Dosage: 30 MG
     Dates: end: 20200131
  7. COLCHICIN [Concomitant]
     Active Substance: COLCHICINE
     Dates: end: 20200131

REACTIONS (5)
  - Arrhythmia [Unknown]
  - Cough [Unknown]
  - Asthenia [Unknown]
  - Performance status decreased [Unknown]
  - Pyrexia [Unknown]
